FAERS Safety Report 24194484 (Version 1)
Quarter: 2024Q3

REPORT INFORMATION
  Report Type: Report from Study
  Country: CA (occurrence: CA)
  Receive Date: 20240809
  Receipt Date: 20240809
  Transmission Date: 20241017
  Serious: Yes (Other)
  Sender: PFIZER
  Company Number: CA-PFIZER INC-202400231221

PATIENT
  Age: 52 Year
  Sex: Male

DRUGS (9)
  1. AZITHROMYCIN [Suspect]
     Active Substance: AZITHROMYCIN
     Indication: Pneumonia
     Dosage: UNK
     Route: 048
  2. CEFTRIAXONE [Suspect]
     Active Substance: CEFTRIAXONE\CEFTRIAXONE SODIUM
     Indication: Pneumonia
     Dosage: 2 G, 1X/DAY
     Route: 042
  3. REMICADE [Suspect]
     Active Substance: INFLIXIMAB
     Indication: Crohn^s disease
     Dosage: 8 MG/KG, 1 EVERY 6 WEEKS
     Route: 041
  4. REMICADE [Suspect]
     Active Substance: INFLIXIMAB
     Indication: Crohn^s disease
     Dosage: 960 MG, 1 EVERY 6 WEEKS
     Route: 041
  5. AMLODIPINE [Concomitant]
     Active Substance: AMLODIPINE BESYLATE
     Dosage: 5 MG, 1X/DAY
  6. CYANOCOBALAMIN [Concomitant]
     Active Substance: CYANOCOBALAMIN
     Dosage: UNK, 1X/DAY
  7. PANTOPRAZOLE [Concomitant]
     Active Substance: PANTOPRAZOLE
     Dosage: 40 MG, 1X/DAY
  8. PERINDOPRIL [Concomitant]
     Active Substance: PERINDOPRIL
     Dosage: 4 MG, 1X/DAY
  9. SYNTHROID [Concomitant]
     Active Substance: LEVOTHYROXINE SODIUM
     Dosage: UNK, 1X/DAY

REACTIONS (3)
  - Off label use [Unknown]
  - Pneumonia [Not Recovered/Not Resolved]
  - Purpura [Not Recovered/Not Resolved]
